FAERS Safety Report 4709545-8 (Version None)
Quarter: 2005Q3

REPORT INFORMATION
  Report Type: 
  Country: None (occurrence: None)
  Receive Date: 20050707
  Receipt Date: 20050616
  Transmission Date: 20060218
  Serious: Yes (Death)
  Sender: FDA-Public Use
  Company Number: US_0501110652

PATIENT
  Age: 17 Year
  Sex: Male
  Weight: 72 kg

DRUGS (5)
  1. STRATTERA [Suspect]
     Dosage: 960 MG
  2. PAXIL [Concomitant]
  3. AMBIEN [Concomitant]
  4. SEROQUEL [Concomitant]
  5. LAMICTAL [Concomitant]

REACTIONS (3)
  - COMPLETED SUICIDE [None]
  - DRUG LEVEL INCREASED [None]
  - TREATMENT NONCOMPLIANCE [None]
